FAERS Safety Report 8852975 (Version 3)
Quarter: 2013Q4

REPORT INFORMATION
  Report Type: Report from Study
  Country: US (occurrence: US)
  Receive Date: 20121022
  Receipt Date: 20131108
  Transmission Date: 20140711
  Serious: Yes (Death, Hospitalization)
  Sender: FDA-Public Use
  Company Number: PHHO2011US13036

PATIENT
  Age: 64 Year
  Sex: Female
  Weight: 45.36 kg

DRUGS (9)
  1. FUROSEMIDE [Suspect]
     Indication: PULMONARY ARTERIAL HYPERTENSION
     Dosage: 80 MG, TID
     Dates: start: 20100111, end: 20120407
  2. QTI571 [Suspect]
     Indication: PULMONARY ARTERIAL HYPERTENSION
     Dosage: 200 MG, QD
     Route: 048
     Dates: start: 20100930, end: 20110725
  3. QTI571 [Suspect]
     Dosage: 200 MG, QD
     Route: 048
     Dates: start: 20111003, end: 20120407
  4. FLOLAN [Concomitant]
     Indication: PULMONARY ARTERIAL HYPERTENSION
     Dosage: 100 ML, UNK
     Route: 042
     Dates: start: 20091010
  5. TRACLEER [Concomitant]
     Indication: PULMONARY ARTERIAL HYPERTENSION
     Dosage: 125 MG, BID
     Route: 048
     Dates: start: 20060414
  6. METOLAZONE [Concomitant]
     Indication: PULMONARY ARTERIAL HYPERTENSION
     Dosage: 2.5 MG, QD
     Route: 048
     Dates: start: 20100106
  7. OXYGEN [Concomitant]
     Indication: PULMONARY ARTERIAL HYPERTENSION
     Dosage: 10 L/ MIN
     Route: 045
     Dates: start: 20100824
  8. BOSENTAN [Concomitant]
     Indication: PULMONARY ARTERIAL HYPERTENSION
     Dosage: 125 MG, BID
     Dates: start: 20060814
  9. ADCIRCA [Concomitant]
     Indication: PULMONARY ARTERIAL HYPERTENSION
     Dosage: 40 MG, QD
     Dates: start: 20091223

REACTIONS (3)
  - Renal failure [Recovered/Resolved]
  - Respiratory failure [Fatal]
  - Hyponatraemia [Recovered/Resolved]
